FAERS Safety Report 25825516 (Version 1)
Quarter: 2025Q3

REPORT INFORMATION
  Report Type: Spontaneous
  Country: US (occurrence: US)
  Receive Date: 20250919
  Receipt Date: 20250919
  Transmission Date: 20251021
  Serious: No
  Sender: SANOFI AVENTIS
  Company Number: US-SA-2025SA280418

PATIENT
  Sex: Female

DRUGS (22)
  1. DUPIXENT [Suspect]
     Active Substance: DUPILUMAB
     Indication: Asthma
     Dosage: 300 MG, QOW
     Route: 058
  2. ACETAMINOPHEN [Concomitant]
     Active Substance: ACETAMINOPHEN
  3. ALBUTEROL SULFATE [Concomitant]
     Active Substance: ALBUTEROL SULFATE
  4. ALENDRONATE [Concomitant]
     Active Substance: ALENDRONATE SODIUM
  5. ASPIRIN [Concomitant]
     Active Substance: ASPIRIN
  6. ATORVASTATIN [Concomitant]
     Active Substance: ATORVASTATIN
  7. AZITHROMYCIN [Concomitant]
     Active Substance: AZITHROMYCIN
  8. BROVANA [Concomitant]
     Active Substance: ARFORMOTEROL TARTRATE
  9. BUDESONIDE [Concomitant]
     Active Substance: BUDESONIDE
  10. FISH OIL [Concomitant]
     Active Substance: FISH OIL
  11. FLAXSEED [Concomitant]
     Active Substance: FLAX SEED
  12. FLUTICASONE [Concomitant]
     Active Substance: FLUTICASONE
  13. HYDROCHLOROTHIAZIDE [Concomitant]
     Active Substance: HYDROCHLOROTHIAZIDE
  14. IPRATROPIUM [Concomitant]
     Active Substance: IPRATROPIUM
  15. OYSTER SHELL [Concomitant]
     Active Substance: OSTREA EDULIS SHELL
  16. PRILOSEC OTC [Concomitant]
     Active Substance: OMEPRAZOLE MAGNESIUM
  17. SINGULAIR [Concomitant]
     Active Substance: MONTELUKAST SODIUM
  18. SODIUM CHLORIDE [Concomitant]
     Active Substance: SODIUM CHLORIDE
  19. VITAMIN D NOS [Concomitant]
     Active Substance: CHOLECALCIFEROL\ERGOCALCIFEROL
  20. DILTIAZEM HYDROCHLORIDE [Concomitant]
     Active Substance: DILTIAZEM HYDROCHLORIDE
  21. CETIRIZINE HCL [Concomitant]
     Active Substance: CETIRIZINE HYDROCHLORIDE
  22. AZELASTINE HYDROCHLORIDE [Concomitant]
     Active Substance: AZELASTINE HYDROCHLORIDE

REACTIONS (1)
  - Injection site pain [Not Recovered/Not Resolved]
